FAERS Safety Report 9781737 (Version 2)
Quarter: 2014Q1

REPORT INFORMATION
  Report Type: Report from Study
  Country: US (occurrence: US)
  Receive Date: 20131224
  Receipt Date: 20140221
  Transmission Date: 20141002
  Serious: Yes (Hospitalization)
  Sender: FDA-Public Use
  Company Number: US-ROCHE-1322492

PATIENT
  Age: 51 Year
  Sex: Female
  Weight: 60.5 kg

DRUGS (7)
  1. TRASTUZUMAB EMTANSINE [Suspect]
     Indication: BREAST CANCER
     Dosage: LAST DOSE 216.36 MG ON 27/NOV/2013
     Route: 042
     Dates: start: 20120905
  2. K-DUR [Concomitant]
     Indication: HYPOKALAEMIA
     Route: 065
     Dates: start: 20130718
  3. SENNA [Concomitant]
     Indication: CONSTIPATION
     Route: 065
     Dates: start: 201211
  4. DEXAMETHASONE [Concomitant]
     Indication: METASTASES TO CENTRAL NERVOUS SYSTEM
     Route: 065
     Dates: start: 20131211, end: 201312
  5. DOCUSATE [Concomitant]
     Indication: CONSTIPATION
     Route: 065
     Dates: start: 20131211
  6. ONDANSETRON [Concomitant]
     Indication: NAUSEA
     Route: 065
     Dates: start: 20131211
  7. MORPHINE [Concomitant]
     Indication: PAIN
     Route: 065
     Dates: start: 20131211, end: 20131212

REACTIONS (1)
  - Haemorrhage intracranial [Recovered/Resolved with Sequelae]
